FAERS Safety Report 16361901 (Version 3)
Quarter: 2019Q4

REPORT INFORMATION
  Report Type: Report from Study
  Country: US (occurrence: US)
  Receive Date: 20190528
  Receipt Date: 20191118
  Transmission Date: 20200122
  Serious: Yes (Hospitalization)
  Sender: FDA-Public Use
  Company Number: US-PFIZER INC-2019219164

PATIENT
  Age: 71 Year
  Sex: Female
  Weight: 82.9 kg

DRUGS (8)
  1. METHYLPREDNISOLONE. [Suspect]
     Active Substance: METHYLPREDNISOLONE
     Dosage: 160 MG, 1X/DAY
     Route: 042
     Dates: start: 20180629
  2. PREDNISONE. [Suspect]
     Active Substance: PREDNISONE
     Indication: GRAFT VERSUS HOST DISEASE
     Dosage: 100 MG
     Route: 048
     Dates: start: 20180717
  3. METHYLPREDNISOLONE. [Suspect]
     Active Substance: METHYLPREDNISOLONE
     Indication: GRAFT VERSUS HOST DISEASE
     Dosage: 52 MG, 2X/DAY
     Route: 042
     Dates: start: 20180713
  4. METHYLPREDNISOLONE. [Suspect]
     Active Substance: METHYLPREDNISOLONE
     Dosage: 40 MG AM, 52 MG PM, 1X/DAY
     Route: 042
     Dates: start: 20180712, end: 20180712
  5. BLINDED THERAPY [Suspect]
     Active Substance: INVESTIGATIONAL PRODUCT
     Indication: GRAFT VERSUS HOST DISEASE
     Dosage: UNK
     Dates: start: 20180629, end: 20180708
  6. PREDNISONE. [Suspect]
     Active Substance: PREDNISONE
     Dosage: 120 MG, 1X/DAY
     Route: 048
     Dates: start: 20180714, end: 20180716
  7. BLINDED THERAPY [Suspect]
     Active Substance: INVESTIGATIONAL PRODUCT
     Dosage: UNK
     Dates: start: 20180708, end: 20180712
  8. FLOMAX [MORNIFLUMATE] [Suspect]
     Active Substance: MORNIFLUMATE
     Dosage: UNK
     Dates: start: 20180626, end: 20180712

REACTIONS (2)
  - Vertigo [Recovered/Resolved]
  - Syncope [Recovered/Resolved]

NARRATIVE: CASE EVENT DATE: 20180713
